FAERS Safety Report 19849734 (Version 4)
Quarter: 2025Q3

REPORT INFORMATION
  Report Type: Report from Study
  Country: CA (occurrence: CA)
  Receive Date: 20210917
  Receipt Date: 20250730
  Transmission Date: 20251021
  Serious: Yes (Other)
  Sender: TAKEDA
  Company Number: CA-TAKEDA-2020TUS061559

PATIENT
  Age: 43 Year
  Sex: Female

DRUGS (16)
  1. VEDOLIZUMAB [Suspect]
     Active Substance: VEDOLIZUMAB
     Indication: Crohn^s disease
  2. VEDOLIZUMAB [Suspect]
     Active Substance: VEDOLIZUMAB
     Dosage: 300 MILLIGRAM, Q4WEEKS
     Dates: start: 20210907
  3. VEDOLIZUMAB [Suspect]
     Active Substance: VEDOLIZUMAB
     Dosage: 300 MILLIGRAM, Q4WEEKS
  4. VEDOLIZUMAB [Suspect]
     Active Substance: VEDOLIZUMAB
     Dosage: 300 MILLIGRAM, Q4WEEKS
  5. VEDOLIZUMAB [Suspect]
     Active Substance: VEDOLIZUMAB
     Dosage: 300 MILLIGRAM, Q4WEEKS
  6. DEXILANT [Suspect]
     Active Substance: DEXLANSOPRAZOLE
     Indication: Product used for unknown indication
  7. ENTOCORT [Concomitant]
     Active Substance: BUDESONIDE
  8. ENTOCORT [Concomitant]
     Active Substance: BUDESONIDE
  9. CIPRALEX [Concomitant]
     Active Substance: ESCITALOPRAM OXALATE
  10. IRON [Concomitant]
     Active Substance: IRON
  11. VITAMIN D NOS [Concomitant]
     Active Substance: CHOLECALCIFEROL\ERGOCALCIFEROL
  12. RIVOTRIL [Concomitant]
     Active Substance: CLONAZEPAM
  13. COLACE [Concomitant]
     Active Substance: DOCUSATE SODIUM
  14. FERAMAX [Concomitant]
     Active Substance: IRON\POLYSACCHARIDES
  15. ACETAMINOPHEN\TRAMADOL [Concomitant]
     Active Substance: ACETAMINOPHEN\TRAMADOL
  16. ALIGN [Concomitant]
     Active Substance: BIFIDOBACTERIUM LONGUM SUBSP. INFANTIS

REACTIONS (6)
  - Crohn^s disease [Unknown]
  - Off label use [Unknown]
  - Stress [Recovering/Resolving]
  - Abdominal pain [Recovered/Resolved]
  - Constipation [Not Recovered/Not Resolved]
  - Menstrual headache [Unknown]

NARRATIVE: CASE EVENT DATE: 20210907
